FAERS Safety Report 10030837 (Version 2)
Quarter: 2014Q1

REPORT INFORMATION
  Report Type: Spontaneous
  Country: US (occurrence: US)
  Receive Date: 20140323
  Receipt Date: 20140323
  Transmission Date: 20141002
  Serious: No
  Sender: FDA-Public Use
  Company Number: US-ALLERGAN-1314502US

PATIENT
  Age: 47 Year
  Sex: Female

DRUGS (1)
  1. LATISSE 0.03% [Suspect]
     Indication: GROWTH OF EYELASHES
     Dosage: 2 GTT, UNK
     Route: 061

REACTIONS (7)
  - Acne [Recovered/Resolved]
  - Inappropriate schedule of drug administration [Unknown]
  - Wrong technique in drug usage process [Unknown]
  - Eye discharge [Recovered/Resolved]
  - Eye discharge [Recovered/Resolved]
  - Eye discharge [Recovered/Resolved]
  - Scleral hyperaemia [Recovered/Resolved]
